FAERS Safety Report 16479200 (Version 1)
Quarter: 2019Q2

REPORT INFORMATION
  Report Type: Spontaneous
  Country: US (occurrence: US)
  Receive Date: 20190626
  Receipt Date: 20190626
  Transmission Date: 20190711
  Serious: Yes (Other)
  Sender: FDA-Public Use
  Company Number: US-SAOL THERAPEUTICS-2019SAO00088

PATIENT
  Age: 18 Year
  Sex: Male
  Weight: 40.36 kg

DRUGS (3)
  1. BACLOFEN. [Concomitant]
     Active Substance: BACLOFEN
     Route: 048
  2. LIORESAL [Suspect]
     Active Substance: BACLOFEN
     Dosage: 204.8 ?G, \DAY
     Route: 037
  3. LIORESAL [Suspect]
     Active Substance: BACLOFEN
     Dosage: UNK, \DAY
     Route: 037

REACTIONS (3)
  - Device dislocation [Recovered/Resolved]
  - Device breakage [Recovered/Resolved]
  - Therapeutic response decreased [Unknown]

NARRATIVE: CASE EVENT DATE: 201902
